FAERS Safety Report 9720382 (Version 2)
Quarter: 2013Q4

REPORT INFORMATION
  Report Type: Spontaneous
  Country: JP (occurrence: JP)
  Receive Date: 20131129
  Receipt Date: 20131203
  Transmission Date: 20140711
  Serious: Yes (Hospitalization, Other)
  Sender: FDA-Public Use
  Company Number: JP-JNJFOC-20131114089

PATIENT
  Age: 65 Year
  Sex: Male

DRUGS (3)
  1. NICORETTE 2 MG GUM [Suspect]
     Indication: SMOKING CESSATION THERAPY
     Route: 048
  2. NICORETTE 2 MG GUM [Suspect]
     Indication: SMOKING CESSATION THERAPY
     Route: 048
  3. NICORETTE 2 MG GUM [Suspect]
     Indication: SMOKING CESSATION THERAPY
     Dosage: 1/4 PIECE
     Route: 048

REACTIONS (10)
  - Cerebral infarction [Unknown]
  - Intentional drug misuse [Unknown]
  - Musculoskeletal stiffness [Unknown]
  - Local swelling [Recovering/Resolving]
  - Abdominal pain upper [Unknown]
  - Insomnia [Unknown]
  - Feeling cold [Unknown]
  - Fatigue [Unknown]
  - Eyelid oedema [Unknown]
  - Rash [Unknown]
